FAERS Safety Report 5428876-X (Version None)
Quarter: 2007Q3

REPORT INFORMATION
  Report Type: 
  Country: None (occurrence: None)
  Receive Date: 20070824
  Receipt Date: 20070808
  Transmission Date: 20080115
  Serious: Yes (Other)
  Sender: FDA-Public Use
  Company Number: DSA_30473_2007

PATIENT
  Sex: Male

DRUGS (12)
  1. DILTIAZEM [Suspect]
     Indication: DRUG USE FOR UNKNOWN INDICATION
     Dosage: 60 MG BID ORAL
  2. ATARAX /00058402/ [Concomitant]
  3. ATHYMIL [Concomitant]
  4. NEXIUM [Concomitant]
  5. KARDEGIC /00002703/ [Concomitant]
  6. BRONCHODUAL [Concomitant]
  7. DIANTALVIC [Concomitant]
  8. DEBRIDAT /00465202/ [Concomitant]
  9. DUPHALAC /00163401/ [Concomitant]
  10. CALCIDIA [Concomitant]
  11. LEVOTHYROX [Concomitant]
  12. ALFA D [Concomitant]

REACTIONS (4)
  - FURUNCLE [None]
  - PRURITUS [None]
  - RASH [None]
  - SKIN ULCER [None]
